FAERS Safety Report 5569869-1 (Version None)
Quarter: 2007Q4

REPORT INFORMATION
  Report Type: 
  Country: None (occurrence: None)
  Receive Date: 20071220
  Receipt Date: 20070816
  Transmission Date: 20080405
  Serious: No
  Sender: FDA-Public Use
  Company Number: US-ABBOTT-07P-163-0378257-00

PATIENT
  Age: 53 Year
  Sex: Female

DRUGS (2)
  1. OMNICEF [Suspect]
     Indication: SINUSITIS
  2. AZITHROMYCIN [Concomitant]
     Indication: SINUSITIS

REACTIONS (3)
  - ABDOMINAL DISCOMFORT [None]
  - ABDOMINAL PAIN [None]
  - DIARRHOEA [None]
